FAERS Safety Report 10881931 (Version 1)
Quarter: 2015Q1

REPORT INFORMATION
  Report Type: Spontaneous
  Country: US (occurrence: None)
  Receive Date: 20150226
  Receipt Date: 20150226
  Transmission Date: 20150721
  Serious: Yes (Life-Threatening, Hospitalization, Other)
  Sender: FDA-Public Use
  Company Number: None

PATIENT
  Age: 79 Year
  Sex: Female
  Weight: 72 kg

DRUGS (9)
  1. RIVAROXABAN (XARELTO STARTER PACK) [Concomitant]
  2. MECLIZINE (ANTIVERT) [Concomitant]
  3. ONDANSETRON (ZOFRAN-ODT) [Concomitant]
  4. HYDROCODONE-ACETAMINOPHEN (NORCO) [Concomitant]
  5. RIVAROXABAN 15 MG JANSSEN [Suspect]
     Active Substance: RIVAROXABAN
     Indication: PULMONARY EMBOLISM
     Dosage: 1 PILL, BID, ORAL
     Route: 048
     Dates: start: 20150210, end: 20150223
  6. ASPIRIN. [Concomitant]
     Active Substance: ASPIRIN
  7. LOSARTAN (COZAAR) [Concomitant]
  8. DEXLANSOPRAZOLE (DEXILANT) [Concomitant]
  9. XANAX [Concomitant]
     Active Substance: ALPRAZOLAM

REACTIONS (6)
  - Malaise [None]
  - Haemoptysis [None]
  - Dyspnoea [None]
  - Pleural effusion [None]
  - Fatigue [None]
  - Pulmonary alveolar haemorrhage [None]

NARRATIVE: CASE EVENT DATE: 20150223
